FAERS Safety Report 17394849 (Version 3)
Quarter: 2020Q1

REPORT INFORMATION
  Report Type: Spontaneous
  Country: DE (occurrence: DE)
  Receive Date: 20200210
  Receipt Date: 20200311
  Transmission Date: 20200409
  Serious: Yes (Other)
  Sender: FDA-Public Use
  Company Number: DE-GLAXOSMITHKLINE-DE2020018177

PATIENT
  Age: 66 Year
  Sex: Male

DRUGS (3)
  1. TORASEMID [Suspect]
     Active Substance: TORSEMIDE
     Indication: OEDEMA
     Dosage: 20 MG, QD
  2. REQUIP [Suspect]
     Active Substance: ROPINIROLE HYDROCHLORIDE
     Indication: PRODUCT USED FOR UNKNOWN INDICATION
     Dosage: UNK (3 X 2 MG)
     Dates: start: 20190831
  3. MADOPAR [Suspect]
     Active Substance: BENSERAZIDE HYDROCHLORIDE\LEVODOPA
     Indication: PRODUCT USED FOR UNKNOWN INDICATION
     Dosage: UNK (5 X 125 MG)

REACTIONS (5)
  - Parkinson^s disease [Unknown]
  - Oedema peripheral [Not Recovered/Not Resolved]
  - Therapeutic product effect incomplete [Unknown]
  - Weight increased [Unknown]
  - Generalised oedema [Unknown]

NARRATIVE: CASE EVENT DATE: 2019
